FAERS Safety Report 6310407-3 (Version None)
Quarter: 2009Q3

REPORT INFORMATION
  Report Type: 
  Country: None (occurrence: None)
  Receive Date: 20090814
  Receipt Date: 20090804
  Transmission Date: 20100115
  Serious: Yes (Disabling, Other)
  Sender: FDA-Public Use
  Company Number: NO-PFIZER INC-2009253879

PATIENT
  Age: 35 Year

DRUGS (5)
  1. CARBOPLATIN [Suspect]
     Indication: TESTIS CANCER
     Dosage: UNK
     Route: 042
     Dates: start: 20081124, end: 20090301
  2. CISPLATIN [Suspect]
     Indication: TESTIS CANCER
     Dosage: UNK
     Route: 042
     Dates: start: 20081104, end: 20081101
  3. ETOPOSIDE [Suspect]
     Indication: TESTIS CANCER
     Dosage: UNK
     Route: 042
     Dates: start: 20081104, end: 20090310
  4. PREDNISOLONE AND PREDNISOLONE STEAGLATE [Suspect]
  5. BLEOMYCIN SULFATE [Suspect]
     Indication: TESTIS CANCER
     Dosage: 10000-15000 IE/M2 1 COURSE OR 5 COUSES
     Route: 042
     Dates: start: 20081104

REACTIONS (1)
  - PULMONARY FIBROSIS [None]
